FAERS Safety Report 15183376 (Version 2)
Quarter: 2019Q2

REPORT INFORMATION
  Report Type: Report from Study
  Country: GB (occurrence: GB)
  Receive Date: 20180723
  Receipt Date: 20190611
  Transmission Date: 20190711
  Serious: Yes (Hospitalization, Other)
  Sender: FDA-Public Use
  Company Number: PHHY2018GB025337

PATIENT
  Sex: Male

DRUGS (1)
  1. COSENTYX [Suspect]
     Active Substance: SECUKINUMAB
     Indication: PSORIASIS
     Dosage: 300 MG, UNK
     Route: 058
     Dates: start: 20180309, end: 20180528

REACTIONS (5)
  - Angina pectoris [Unknown]
  - Liver disorder [Unknown]
  - Arthritis [Unknown]
  - Psoriasis [Unknown]
  - Pain in extremity [Unknown]
